FAERS Safety Report 16863351 (Version 2)
Quarter: 2019Q4

REPORT INFORMATION
  Report Type: Spontaneous
  Country: US (occurrence: US)
  Receive Date: 20190927
  Receipt Date: 20191018
  Transmission Date: 20200122
  Serious: No
  Sender: FDA-Public Use
  Company Number: US-SA-2019SA268056

PATIENT
  Age: 39 Year
  Sex: Female

DRUGS (2)
  1. CABLIVI [Suspect]
     Active Substance: CAPLACIZUMAB-YHDP
     Indication: THROMBOTIC MICROANGIOPATHY
     Dosage: 11 MG, QD
     Route: 058
     Dates: start: 20190910
  2. PREDNISONE. [Concomitant]
     Active Substance: PREDNISONE
     Dosage: UNK UNK, UNK
     Route: 065

REACTIONS (6)
  - Pruritus [Unknown]
  - Injection site bruising [Unknown]
  - Epistaxis [Unknown]
  - Dyspepsia [Unknown]
  - Menstruation irregular [Unknown]
  - Insomnia [Unknown]

NARRATIVE: CASE EVENT DATE: 20190919
